FAERS Safety Report 19634697 (Version 11)
Quarter: 2022Q2

REPORT INFORMATION
  Report Type: Report from Study
  Country: US (occurrence: US)
  Receive Date: 20210729
  Receipt Date: 20220617
  Transmission Date: 20220721
  Serious: Yes (Hospitalization)
  Sender: FDA-Public Use
  Company Number: US-NOVARTISPH-NVSC2021US164551

PATIENT
  Age: 65 Year
  Sex: Male
  Weight: 46.259 kg

DRUGS (10)
  1. TREPROSTINIL [Suspect]
     Active Substance: TREPROSTINIL
     Indication: Pulmonary arterial hypertension
     Dosage: 90 NG/KG/MIN, CONT (STRENGTH 1MG/ML)
     Route: 042
     Dates: start: 20201008
  2. TREPROSTINIL [Suspect]
     Active Substance: TREPROSTINIL
     Dosage: 88 NG/KG/MIN, CONT (STRENGTH 5 MG/ML)
     Route: 042
  3. TREPROSTINIL [Suspect]
     Active Substance: TREPROSTINIL
     Dosage: 83 NG/KG/MIN, CONT (STRENGTH 1MG/ML)
     Route: 042
  4. TREPROSTINIL [Suspect]
     Active Substance: TREPROSTINIL
     Dosage: 83 NG/KG/MIN, CONT
     Route: 042
  5. TREPROSTINIL [Suspect]
     Active Substance: TREPROSTINIL
     Dosage: 78 NG/KG/MIN
     Route: 042
     Dates: start: 20200810
  6. TREPROSTINIL [Suspect]
     Active Substance: TREPROSTINIL
     Dosage: 78 NG/KG/MIN
     Route: 042
  7. TREPROSTINIL [Suspect]
     Active Substance: TREPROSTINIL
     Dosage: UNK
     Route: 065
  8. ELIQUIS [Concomitant]
     Active Substance: APIXABAN
     Indication: Product used for unknown indication
     Dosage: UNK
     Route: 065
  9. SILDENAFIL CITRATE [Concomitant]
     Active Substance: SILDENAFIL CITRATE
     Indication: Product used for unknown indication
     Dosage: UNK
     Route: 065
  10. AMBRISENTAN [Concomitant]
     Active Substance: AMBRISENTAN
     Indication: Product used for unknown indication
     Dosage: UNK
     Route: 065

REACTIONS (7)
  - Hypervolaemia [Unknown]
  - Haemoglobin decreased [Unknown]
  - Fluid retention [Unknown]
  - Fall [Unknown]
  - Head injury [Unknown]
  - Subdural haemorrhage [Unknown]
  - Dyspnoea [Unknown]

NARRATIVE: CASE EVENT DATE: 20210714
